FAERS Safety Report 23645588 (Version 1)
Quarter: 2024Q1

REPORT INFORMATION
  Report Type: Spontaneous
  Country: IT (occurrence: IT)
  Receive Date: 20240319
  Receipt Date: 20240319
  Transmission Date: 20240410
  Serious: Yes (Other)
  Sender: FDA-Public Use
  Company Number: IT-ROCHE-3275721

PATIENT
  Age: 62 Year
  Sex: Female
  Weight: 53 kg

DRUGS (17)
  1. ANASTROZOLE [Suspect]
     Active Substance: ANASTROZOLE
     Indication: Breast cancer
     Dosage: 1 MILLIGRAM, ONCE A DAY
     Route: 048
     Dates: start: 20190628, end: 20210923
  2. PACLITAXEL [Suspect]
     Active Substance: PACLITAXEL
     Indication: Breast cancer
     Dosage: 120 MILLIGRAM, EVERY WEEK
     Route: 042
     Dates: start: 20190104, end: 20190621
  3. EXEMESTANE [Suspect]
     Active Substance: EXEMESTANE
     Indication: Breast cancer
     Dosage: 25 MILLIGRAM, ONCE A DAY
     Route: 048
     Dates: start: 20210924
  4. PERTUZUMAB [Suspect]
     Active Substance: PERTUZUMAB
     Indication: Breast cancer
     Dosage: 840 MILLIGRAM (EVERY 3 WEEK)
     Route: 042
     Dates: start: 20190104, end: 20190104
  5. PERTUZUMAB [Suspect]
     Active Substance: PERTUZUMAB
     Dosage: 420 MILLIGRAM ( EVERY 3 WEEK)
     Route: 042
     Dates: start: 20190125
  6. TRASTUZUMAB [Suspect]
     Active Substance: TRASTUZUMAB
     Indication: Breast cancer
     Dosage: 416 MILLIGRAM (EVERY 3 WEEK)
     Route: 042
     Dates: start: 20190104, end: 20190104
  7. TRASTUZUMAB [Suspect]
     Active Substance: TRASTUZUMAB
     Dosage: 6 MILLIGRAM/KILOGRAM (3 WEEK)
     Route: 042
     Dates: start: 20190125, end: 20220826
  8. ENHERTU [Suspect]
     Active Substance: FAM-TRASTUZUMAB DERUXTECAN-NXKI
     Indication: Breast cancer
     Dosage: 270 MILLIGRAM (EVERY 3 WEEK)
     Route: 042
     Dates: start: 20221006
  9. ANASTROZOLE [Concomitant]
     Active Substance: ANASTROZOLE
     Indication: Hypertension
     Dosage: 1 MILLIGRAM
     Route: 065
     Dates: start: 20211125
  10. CHLORPHENIRAMINE MALEATE [Concomitant]
     Active Substance: CHLORPHENIRAMINE MALEATE
     Indication: Product used for unknown indication
     Dosage: 10 MILLIGRAM, EVERY WEEK
     Route: 065
     Dates: start: 20190104, end: 20190621
  11. CHLORPHENIRAMINE MALEATE [Concomitant]
     Active Substance: CHLORPHENIRAMINE MALEATE
     Dosage: 10 MILLIGRAM (3 WEEK)
     Route: 065
     Dates: start: 20190719
  12. GRANISETRONE [Concomitant]
     Indication: Product used for unknown indication
     Dosage: 1 MILLIGRAM, EVERY WEEK
     Route: 065
     Dates: start: 20190104, end: 20190621
  13. METHYLPREDNISOLONE [Concomitant]
     Active Substance: METHYLPREDNISOLONE
     Indication: Product used for unknown indication
     Dosage: 125 MILLIGRAM (EVERY 3 WEEK)
     Route: 065
     Dates: start: 20200508
  14. METOPROLOL [Concomitant]
     Active Substance: METOPROLOL
     Indication: Hypertension
     Dosage: 25 MILLIGRAM, TWO TIMES A DAY
     Route: 065
     Dates: start: 20200829
  15. PANTOPRAZOLE SODIUM [Concomitant]
     Active Substance: PANTOPRAZOLE SODIUM
     Indication: Product used for unknown indication
     Dosage: 20 MILLIGRAM, ONCE A DAY
     Route: 065
  16. LAMIVUDINE [Concomitant]
     Active Substance: LAMIVUDINE
     Indication: Product used for unknown indication
     Dosage: 100 MILLIGRAM, ONCE A DAY
     Route: 065
  17. ZOLEDRONIC ACID [Concomitant]
     Active Substance: ZOLEDRONIC ACID
     Indication: Metastases to bone
     Dosage: 4 MILLIGRAM (3 MONTH)
     Route: 065

REACTIONS (2)
  - Toxicity to various agents [Recovered/Resolved]
  - Asthenia [Recovered/Resolved]

NARRATIVE: CASE EVENT DATE: 20221027
